FAERS Safety Report 5149280-8 (Version None)
Quarter: 2006Q4

REPORT INFORMATION
  Report Type: 
  Country: None (occurrence: None)
  Receive Date: 20061113
  Receipt Date: 20061019
  Transmission Date: 20070319
  Serious: Yes (Other)
  Sender: FDA-Public Use
  Company Number: 2006JP004119

PATIENT
  Age: 60 Year
  Sex: Female

DRUGS (2)
  1. CEFAMEZIN [Suspect]
     Indication: SKIN LACERATION
     Dosage: 1G PER DAY
     Route: 042
     Dates: start: 20060920, end: 20060920
  2. LOCAL ANESTHESIA [Concomitant]
     Indication: SKIN LACERATION
     Route: 065

REACTIONS (6)
  - ANAPHYLACTIC SHOCK [None]
  - BLOOD PRESSURE DECREASED [None]
  - ERYTHEMA [None]
  - OXYGEN SATURATION DECREASED [None]
  - PRURITUS [None]
  - VOMITING [None]
